FAERS Safety Report 14683643 (Version 2)
Quarter: 2021Q1

REPORT INFORMATION
  Report Type: Other
  Country: US (occurrence: US)
  Receive Date: 20180327
  Receipt Date: 20210317
  Transmission Date: 20210419
  Serious: Yes (Other)
  Sender: FDA-Public Use
  Company Number: US-ROCHE-2094695

PATIENT
  Sex: Female
  Weight: 75.36 kg

DRUGS (1)
  1. OCREVUS [Suspect]
     Active Substance: OCRELIZUMAB
     Indication: RELAPSING-REMITTING MULTIPLE SCLEROSIS
     Dosage: DATE OF TREATMENTS: 12/MAR/2018, 26/MAR/2018, 24/SEP/2018, 25/MAR/2019, 27/SEP/2019, 27/MAR/2020, 02
     Route: 042
     Dates: start: 20180312

REACTIONS (2)
  - Pruritus [Unknown]
  - Depression [Unknown]
